FAERS Safety Report 17403957 (Version 1)
Quarter: 2020Q1

REPORT INFORMATION
  Report Type: Spontaneous
  Country: US (occurrence: US)
  Receive Date: 20200211
  Receipt Date: 20200211
  Transmission Date: 20200409
  Serious: No
  Sender: FDA-Public Use
  Company Number: US-ICU MEDICAL, INC.-ICU2019US00037

PATIENT

DRUGS (1)
  1. 0.9% SODIUM CHLORIDE IRRIGATION USP (3000 ML) BAG [Suspect]
     Active Substance: SODIUM CHLORIDE
     Indication: PRODUCT USED FOR UNKNOWN INDICATION
     Dosage: 3000 MILLILITER
     Route: 065

REACTIONS (2)
  - Product physical issue [Unknown]
  - Injury [Unknown]
